FAERS Safety Report 8987643 (Version 1)
Quarter: 2012Q4

REPORT INFORMATION
  Report Type: 
  Country: US (occurrence: US)
  Receive Date: 20121227
  Receipt Date: 20121227
  Transmission Date: 20130627
  Serious: Yes (Other)
  Sender: FDA-Public Use
  Company Number: US-ASTRAZENECA-2012SE89899

PATIENT
  Age: 56 Year
  Sex: Female

DRUGS (4)
  1. ANASTROZOLE [Suspect]
     Indication: BREAST CANCER
     Route: 048
     Dates: start: 20110820
  2. LETROZOLE [Suspect]
     Indication: BREAST CANCER
  3. DOCETAXEL [Concomitant]
     Indication: BREAST CANCER
     Dates: start: 201103, end: 201105
  4. CYCLOPHOSPHAMIDE [Concomitant]
     Indication: BREAST CANCER
     Dates: start: 201103, end: 201105

REACTIONS (4)
  - Suicidal ideation [Recovered/Resolved]
  - Depression [Recovered/Resolved]
  - Mood swings [Recovered/Resolved]
  - Pain [Recovered/Resolved]
